FAERS Safety Report 19461542 (Version 1)
Quarter: 2021Q2

REPORT INFORMATION
  Report Type: Spontaneous
  Country: AU (occurrence: AU)
  Receive Date: 20210625
  Receipt Date: 20210625
  Transmission Date: 20210717
  Serious: Yes (Other)
  Sender: FDA-Public Use
  Company Number: AU-MYLANLABS-2021M1036714

PATIENT
  Age: 44 Year
  Sex: Female

DRUGS (1)
  1. ANPEC 40 [Suspect]
     Active Substance: VERAPAMIL HYDROCHLORIDE
     Indication: PRODUCT USED FOR UNKNOWN INDICATION
     Dosage: UNK

REACTIONS (5)
  - Abdominal distension [Unknown]
  - Hypersensitivity [Unknown]
  - Malaise [Unknown]
  - Cyanosis [Unknown]
  - Heart rate increased [Unknown]
